FAERS Safety Report 9877720 (Version 1)
Quarter: 2014Q1

REPORT INFORMATION
  Report Type: Spontaneous
  Country: AT (occurrence: AT)
  Receive Date: 20140206
  Receipt Date: 20140206
  Transmission Date: 20141002
  Serious: Yes (Other)
  Sender: FDA-Public Use
  Company Number: PHHY2014AT012238

PATIENT
  Age: 25 Year
  Sex: Female

DRUGS (7)
  1. CICLOSPORIN [Suspect]
     Indication: IMMUNOSUPPRESSION
  2. AZATHIOPRINE [Suspect]
     Indication: IMMUNOSUPPRESSION
  3. PREDNISOLONE [Suspect]
     Indication: IMMUNOSUPPRESSION
  4. METHYLDOPA [Suspect]
     Indication: HYPERTENSION
  5. METOPROLOL [Suspect]
     Indication: HYPERTENSION
  6. DIHYDRALAZINE SULFATE [Suspect]
     Indication: HYPERTENSION
  7. METHYLPREDNISOLONE [Suspect]
     Indication: KIDNEY TRANSPLANT REJECTION

REACTIONS (9)
  - Kidney transplant rejection [Recovered/Resolved]
  - Renal impairment [Unknown]
  - Foetal growth restriction [Unknown]
  - Pre-eclampsia [Unknown]
  - Blood pressure increased [Unknown]
  - Protein urine present [Unknown]
  - Premature labour [Unknown]
  - Immunosuppressant drug level increased [Unknown]
  - Exposure during pregnancy [Unknown]
